FAERS Safety Report 7850982-0 (Version None)
Quarter: 2011Q4

REPORT INFORMATION
  Report Type: 
  Country: None (occurrence: None)
  Receive Date: 20111024
  Receipt Date: 20111005
  Transmission Date: 20120403
  Serious: Yes (Hospitalization, Other)
  Sender: FDA-Public Use
  Company Number: CIP11001751

PATIENT
  Age: 67 Year
  Sex: Female

DRUGS (51)
  1. FOSAMAX [Suspect]
     Dosage: 10 MG, ORAL; 70 MG, ORAL
     Route: 048
     Dates: start: 20000209, end: 20020806
  2. FOSAMAX [Suspect]
     Dosage: 10 MG, ORAL; 70 MG, ORAL
     Route: 048
     Dates: start: 20001213
  3. PAXIL [Concomitant]
  4. ETHEDENT (SODIUM FLUORIDE) [Concomitant]
  5. NITROFURANTOIN [Concomitant]
  6. ZITHROMAX [Concomitant]
  7. ZOCOR [Concomitant]
  8. HYDROCODONE W/APAP (HYDROCODONE, PARACETAMOL) [Concomitant]
  9. HYDROXYZINE [Concomitant]
  10. DIPROLENE (BETAMETHASONE DIPROPIONATE) [Concomitant]
  11. TRAMADOL HCL [Concomitant]
  12. LIDODERM [Concomitant]
  13. CALCIUM [Concomitant]
  14. ACTONEL [Suspect]
     Dosage: 35 MG, ORAL
     Route: 048
     Dates: start: 20021030, end: 20080301
  15. ZOVIRAX [Concomitant]
  16. NASONEX [Concomitant]
  17. METHYLPREDNISOLONE [Concomitant]
  18. ACIPHEX [Concomitant]
  19. LOVENOX [Concomitant]
  20. CRESTOR [Concomitant]
  21. ASPIRIN [Concomitant]
  22. ACTONEL [Suspect]
     Dosage: 30 MG, ORAL
     Route: 048
     Dates: start: 20021212, end: 20031006
  23. ERY-TAB (ERYTHROMYCIN) [Concomitant]
  24. CIPRO [Concomitant]
  25. ACULAR [Concomitant]
  26. FLUCONAZOLE [Concomitant]
  27. OXYCODONE AND ACETAMINOPHEN [Concomitant]
  28. LEVAQUIN [Concomitant]
  29. CELEBREX [Concomitant]
  30. CRANBERRY (VACCINIUM MACROCARPON) [Concomitant]
  31. BEXTRA [Concomitant]
  32. NEXIUM IV [Concomitant]
  33. GLUCOSAMINE [Concomitant]
  34. TRIAMCINOLONE [Concomitant]
  35. VIOXX [Concomitant]
  36. LIPITOR [Concomitant]
  37. CLOBETASOL [Concomitant]
  38. SKELAXIN [Concomitant]
  39. MULTIVITAMIN [Concomitant]
  40. LOPROX (CICLOPIROX OLAMINE) [Concomitant]
  41. ALUMINIUM CHLORIDE [Concomitant]
  42. FLUOXETINE HCL [Concomitant]
  43. XALATAN [Concomitant]
  44. NABUMETONE [Concomitant]
  45. PROMETHAZINE-CODEINE (CODEINE PHOSPHATE, PROMETHAZINE HYDROCHLORIDE) [Concomitant]
  46. TRAMADOL/APAP (PARACETAMOL, TRAMADOL HYDROCHLORIDE) [Concomitant]
  47. ROXICET [Concomitant]
  48. CLOTRIMAZOLE W/BETAMETHASONE DIPROPIONAT (BETAMETHASONE DIPROPIONATE, [Concomitant]
  49. MELOXICAM [Concomitant]
  50. DICLOFENAC POTASSIUM [Concomitant]
  51. NAPROXEN SODIUM [Concomitant]

REACTIONS (10)
  - FRACTURE NONUNION [None]
  - FALL [None]
  - GAIT DISTURBANCE [None]
  - FRACTURE DELAYED UNION [None]
  - STRESS FRACTURE [None]
  - BUNION [None]
  - PAIN IN EXTREMITY [None]
  - FOOT FRACTURE [None]
  - FEMUR FRACTURE [None]
  - OSTEONECROSIS [None]
